FAERS Safety Report 8118849-0 (Version None)
Quarter: 2012Q1

REPORT INFORMATION
  Report Type: 
  Country: None (occurrence: None)
  Receive Date: 20120207
  Receipt Date: 20120201
  Transmission Date: 20120608
  Serious: Yes (Death, Hospitalization)
  Sender: FDA-Public Use
  Company Number: JP-ELI_LILLY_AND_COMPANY-JP201201007143

PATIENT
  Age: 74 Year
  Sex: Female

DRUGS (4)
  1. GEMZAR [Suspect]
     Indication: PANCREATIC CARCINOMA
     Dosage: 1400 MG, OTHER
     Route: 042
     Dates: start: 20111104
  2. RINDERON                           /00008501/ [Concomitant]
     Dosage: 0.25 MG, BID
     Route: 048
  3. OXYCONTIN [Concomitant]
     Dosage: 2.5 MG, BID
     Route: 048
  4. SENNOSIDE A+B CALCIUM [Concomitant]
     Dosage: 12 MG, QD
     Route: 048

REACTIONS (4)
  - DISSEMINATED INTRAVASCULAR COAGULATION [None]
  - LYMPHANGIOMA [None]
  - RENAL FAILURE ACUTE [None]
  - INTERSTITIAL LUNG DISEASE [None]
